FAERS Safety Report 6082924-5 (Version None)
Quarter: 2009Q1

REPORT INFORMATION
  Report Type: 
  Country: None (occurrence: None)
  Receive Date: 20090204
  Receipt Date: 20080414
  Transmission Date: 20090719
  Serious: Yes (Hospitalization)
  Sender: FDA-Public Use
  Company Number: 273089

PATIENT
  Age: 23 Year
  Sex: Male
  Weight: 65.8 kg

DRUGS (1)
  1. NOVOLOG [Suspect]
     Indication: INSULIN-REQUIRING TYPE 2 DIABETES MELLITUS
     Dosage: 15 IU, BEFORE MEALS, SUBCUTANEOUS
     Route: 058
     Dates: start: 20050101

REACTIONS (2)
  - DEVICE FAILURE [None]
  - DIABETIC KETOACIDOSIS [None]
